FAERS Safety Report 17441191 (Version 1)
Quarter: 2020Q1

REPORT INFORMATION
  Report Type: Spontaneous
  Country: US (occurrence: US)
  Receive Date: 20200220
  Receipt Date: 20200220
  Transmission Date: 20200409
  Serious: No
  Sender: FDA-Public Use
  Company Number: US-SA-2020SA044962

PATIENT
  Age: 50 Year
  Sex: Male

DRUGS (1)
  1. AUBAGIO [Suspect]
     Active Substance: TERIFLUNOMIDE
     Indication: MULTIPLE SCLEROSIS
     Dosage: 14 MG, QD
     Route: 048
     Dates: start: 20180731

REACTIONS (4)
  - Chest discomfort [Unknown]
  - Condition aggravated [Unknown]
  - Sinus congestion [Unknown]
  - Bronchitis [Unknown]

NARRATIVE: CASE EVENT DATE: 2020
